FAERS Safety Report 5497099-0 (Version None)
Quarter: 2007Q4

REPORT INFORMATION
  Report Type: 
  Country: None (occurrence: None)
  Receive Date: 20071025
  Receipt Date: 20071017
  Transmission Date: 20080405
  Serious: Yes (Other)
  Sender: FDA-Public Use
  Company Number: ES-ASTRAZENECA-2007AC02036

PATIENT
  Age: 33 Year
  Sex: Female

DRUGS (2)
  1. TAMOXIFEN CITRATE [Suspect]
     Indication: BREAST CANCER
     Route: 048
  2. CHEMOTHERAPY [Concomitant]
     Indication: BREAST CANCER

REACTIONS (1)
  - DISSEMINATED INTRAVASCULAR COAGULATION [None]
